FAERS Safety Report 5418396-0 (Version None)
Quarter: 2007Q3

REPORT INFORMATION
  Report Type: 
  Country: None (occurrence: None)
  Receive Date: 20070718
  Receipt Date: 20060828
  Transmission Date: 20080115
  Serious: Yes (Hospitalization, Other)
  Sender: FDA-Public Use
  Company Number: 2005161718

PATIENT
  Age: 48 Year
  Sex: Female
  Weight: 54.4316 kg

DRUGS (12)
  1. CELEBREX [Suspect]
     Indication: ARTHRITIS
     Dosage: 600 MG (200 MG, 3 IN 1 D); ORAL
     Route: 048
     Dates: start: 20020802, end: 20021128
  2. CELEBREX [Suspect]
     Indication: PAIN
     Dosage: 600 MG (200 MG, 3 IN 1 D); ORAL
     Route: 048
     Dates: start: 20020802, end: 20021128
  3. CELEBREX [Suspect]
     Indication: TENDONITIS
     Dosage: 600 MG (200 MG, 3 IN 1 D); ORAL
     Route: 048
     Dates: start: 20020802, end: 20021128
  4. BEXTRA [Suspect]
     Indication: PAIN
  5. VIOXX [Suspect]
     Dates: start: 20030101
  6. ACETYLSALICYLIC ACID SRT [Concomitant]
  7. WELLBUTRIN [Concomitant]
  8. PROTONIX [Concomitant]
  9. XANAX [Concomitant]
  10. GLUCOVANCE [Concomitant]
  11. HYDROCODONE BITARTRATE [Concomitant]
  12. ZANTAC 150 [Concomitant]

REACTIONS (3)
  - CEREBRAL THROMBOSIS [None]
  - DEPRESSION [None]
  - EMBOLISM [None]
